FAERS Safety Report 15385188 (Version 1)
Quarter: 2018Q3

REPORT INFORMATION
  Report Type: Spontaneous
  Country: US (occurrence: US)
  Receive Date: 20180907
  Receipt Date: 20180907
  Transmission Date: 20181010
  Serious: Yes (Hospitalization)
  Sender: FDA-Public Use
  Company Number: None

PATIENT
  Age: 50 Year
  Sex: Male
  Weight: 69.3 kg

DRUGS (4)
  1. OXCARBAZEPINE. [Suspect]
     Active Substance: OXCARBAZEPINE
     Indication: SCHIZOAFFECTIVE DISORDER BIPOLAR TYPE
     Route: 048
     Dates: start: 20180329, end: 20180412
  2. DEPAKOTE [Concomitant]
     Active Substance: DIVALPROEX SODIUM
     Dates: start: 20180322, end: 20180907
  3. CLOZAPINE. [Concomitant]
     Active Substance: CLOZAPINE
     Dates: start: 20180210, end: 20180503
  4. PALIPERIDONE. [Concomitant]
     Active Substance: PALIPERIDONE
     Dates: start: 20180315, end: 20180503

REACTIONS (3)
  - Hyponatraemia [None]
  - Fatigue [None]
  - Abdominal discomfort [None]

NARRATIVE: CASE EVENT DATE: 20180410
